FAERS Safety Report 25779944 (Version 1)
Quarter: 2025Q3

REPORT INFORMATION
  Report Type: Spontaneous
  Country: EU (occurrence: EU)
  Receive Date: 20250909
  Receipt Date: 20250909
  Transmission Date: 20251020
  Serious: Yes (Hospitalization)
  Sender: ELI LILLY AND COMPANY
  Company Number: EU-ELI_LILLY_AND_COMPANY-DE202508012945

PATIENT
  Sex: Male
  Weight: 80 kg

DRUGS (7)
  1. RETEVMO [Suspect]
     Active Substance: SELPERCATINIB
     Indication: Non-small cell lung cancer
     Dosage: 160 MG, BID
     Route: 065
     Dates: start: 20240801, end: 20250806
  2. RETEVMO [Suspect]
     Active Substance: SELPERCATINIB
     Route: 065
     Dates: start: 20250827
  3. ALLOPURINOL [Concomitant]
     Active Substance: ALLOPURINOL
     Indication: Product used for unknown indication
  4. LERCANIDIPINE [Concomitant]
     Active Substance: LERCANIDIPINE
     Indication: Product used for unknown indication
  5. PANTOPRAZOLE [Concomitant]
     Active Substance: PANTOPRAZOLE
     Indication: Product used for unknown indication
  6. OLMESARTAN [Concomitant]
     Active Substance: OLMESARTAN
     Indication: Product used for unknown indication
  7. SPIRIVA [Concomitant]
     Active Substance: TIOTROPIUM BROMIDE MONOHYDRATE
     Indication: Product used for unknown indication
     Dosage: UNK, DAILY

REACTIONS (3)
  - Gastrointestinal stromal tumour [Not Recovered/Not Resolved]
  - Ascites [Not Recovered/Not Resolved]
  - Chylothorax [Not Recovered/Not Resolved]

NARRATIVE: CASE EVENT DATE: 20250501
